FAERS Safety Report 13239265 (Version 1)
Quarter: 2017Q1

REPORT INFORMATION
  Report Type: Spontaneous
  Country: BE (occurrence: BE)
  Receive Date: 20170216
  Receipt Date: 20170216
  Transmission Date: 20170428
  Serious: Yes (Hospitalization)
  Sender: FDA-Public Use
  Company Number: BE-PFIZER INC-2017058547

PATIENT
  Age: 44 Year
  Sex: Male

DRUGS (1)
  1. PANTOMED [Suspect]
     Active Substance: DEXPANTHENOL
     Dosage: 40 MG, QD
     Route: 065

REACTIONS (2)
  - Multiple fractures [Unknown]
  - Hypophosphataemia [Unknown]
